FAERS Safety Report 6184084-9 (Version None)
Quarter: 2009Q2

REPORT INFORMATION
  Report Type: 
  Country: None (occurrence: None)
  Receive Date: 20090508
  Receipt Date: 20081124
  Transmission Date: 20091009
  Serious: Yes (Other)
  Sender: FDA-Public Use
  Company Number: US-JNJCH-2008055466

PATIENT
  Age: 4 Year
  Sex: Female
  Weight: 22.7 kg

DRUGS (1)
  1. LUDENS THROAT DROPS WILD CHERRY [Suspect]
     Indication: OROPHARYNGEAL PAIN
     Dosage: TEXT:1 TABLET 2-3 HOURS
     Route: 048
     Dates: start: 20081120, end: 20081120

REACTIONS (5)
  - MALAISE [None]
  - PRODUCT CONTAMINATION [None]
  - PRODUCT QUALITY ISSUE [None]
  - PRODUCT TAMPERING [None]
  - VOMITING [None]
